FAERS Safety Report 7875007-2 (Version None)
Quarter: 2011Q4

REPORT INFORMATION
  Report Type: 
  Country: None (occurrence: None)
  Receive Date: 20111003
  Receipt Date: 20100915
  Transmission Date: 20120403
  Serious: Yes (Other)
  Sender: FDA-Public Use
  Company Number: 248674USA

PATIENT
  Age: 48 Year
  Sex: Female
  Weight: 95.2554 kg

DRUGS (10)
  1. LITHIUM CITRATE [Suspect]
     Dosage: 450 MG
  2. LEVOTHYROXINE SODIUM [Suspect]
     Indication: THYROID DISORDER
  3. PIOGLITAZONE [Concomitant]
  4. ZIPRASIDONE HCL [Suspect]
     Indication: MANIA
     Dosage: 40 MG
     Dates: start: 20100826
  5. ALPRAZOLAM [Suspect]
  6. VALSARTAN [Concomitant]
  7. VENLAFAXINE [Suspect]
     Indication: DEPRESSION
  8. VENLAFAXINE [Suspect]
     Indication: BIPOLAR DISORDER
  9. VENLAFAXINE HYDROCHLORIDE [Suspect]
     Indication: DEPRESSION
     Dosage: 150 MG (150 MG, 1 IN 1 D)
  10. VENLAFAXINE HYDROCHLORIDE [Suspect]
     Indication: BIPOLAR DISORDER
     Dosage: 150 MG (150 MG, 1 IN 1 D)

REACTIONS (19)
  - BALANCE DISORDER [None]
  - MANIA [None]
  - PANIC ATTACK [None]
  - HYPOTENSION [None]
  - FATIGUE [None]
  - PERSONALITY DISORDER [None]
  - AGITATION [None]
  - MENTAL IMPAIRMENT [None]
  - DIABETES MELLITUS [None]
  - RENAL IMPAIRMENT [None]
  - HYPERSENSITIVITY [None]
  - DEPRESSION [None]
  - FEELING ABNORMAL [None]
  - PALPITATIONS [None]
  - RENAL FUNCTION TEST ABNORMAL [None]
  - MENTAL DISORDER [None]
  - BLOOD TRIGLYCERIDES INCREASED [None]
  - ANTIPSYCHOTIC DRUG LEVEL BELOW THERAPEUTIC [None]
  - BLOOD CREATININE INCREASED [None]
